FAERS Safety Report 5082796-1 (Version None)
Quarter: 2006Q3

REPORT INFORMATION
  Report Type: 
  Country: None (occurrence: None)
  Receive Date: 20060816
  Receipt Date: 20060816
  Transmission Date: 20061208
  Serious: Yes (Disabling)
  Sender: FDA-Public Use
  Company Number: None

PATIENT
  Age: 50 Year
  Sex: Female
  Weight: 76.5 kg

DRUGS (12)
  1. IOHEXOL 350 MG1/ ML AMERISHAM HEALTH [Suspect]
     Indication: CATHETERISATION CARDIAC
     Dosage: 30ML    ONCE    IV BOLUS
     Route: 040
     Dates: start: 20051021, end: 20051021
  2. MEPERIDINE HCL [Concomitant]
  3. PROMETHAZINE [Concomitant]
  4. ALPRAZOLAM [Concomitant]
  5. FERROUS SULFATE TAB [Concomitant]
  6. ASCORBIC ACID [Concomitant]
  7. FUROSEMIDE [Concomitant]
  8. METOLAZONE [Concomitant]
  9. HEPARIN [Concomitant]
  10. ACETAZOLAMIDE [Concomitant]
  11. DOBUTAMINE HCL [Concomitant]
  12. TPN [Concomitant]

REACTIONS (2)
  - ACUTE PRERENAL FAILURE [None]
  - CONTRAST MEDIA REACTION [None]
